FAERS Safety Report 7312693-X (Version None)
Quarter: 2011Q1

REPORT INFORMATION
  Report Type: 
  Country: None (occurrence: None)
  Receive Date: 20110224
  Receipt Date: 20101129
  Transmission Date: 20110831
  Serious: No
  Sender: FDA-Public Use
  Company Number: US-ASTRAZENECA-2010SE56806

PATIENT
  Age: 58 Year
  Sex: Male

DRUGS (4)
  1. AVADAR [Concomitant]
     Indication: PROSTATOMEGALY
  2. VIMOVO [Suspect]
     Indication: BACK PAIN
     Route: 048
     Dates: start: 20101001
  3. VIMOVO [Suspect]
     Indication: NECK PAIN
     Route: 048
     Dates: start: 20101001
  4. CRESTOR [Concomitant]
     Indication: HYPERCHOLESTEROLAEMIA

REACTIONS (3)
  - NECK PAIN [None]
  - BACK PAIN [None]
  - DRUG INEFFECTIVE [None]
